FAERS Safety Report 9516763 (Version 1)
Quarter: 2013Q3

REPORT INFORMATION
  Report Type: Spontaneous
  Country: US (occurrence: US)
  Receive Date: 20130911
  Receipt Date: 20130911
  Transmission Date: 20140515
  Serious: No
  Sender: FDA-Public Use
  Company Number: US-ASTRAZENECA-2013SE51493

PATIENT
  Age: 84 Year
  Sex: Female

DRUGS (1)
  1. SYMBICORT [Suspect]
     Dosage: UNKNOWN DOSE DAILY FREQUENCY
     Route: 055

REACTIONS (3)
  - Abasia [Unknown]
  - Activities of daily living impaired [Unknown]
  - Intentional drug misuse [Unknown]
